FAERS Safety Report 16780120 (Version 1)
Quarter: 2019Q3

REPORT INFORMATION
  Report Type: Spontaneous
  Country: US (occurrence: US)
  Receive Date: 20190906
  Receipt Date: 20190906
  Transmission Date: 20191005
  Serious: No
  Sender: FDA-Public Use
  Company Number: US-MYLANLABS-2019M1079165

PATIENT
  Sex: Female
  Weight: 93 kg

DRUGS (1)
  1. ESTRADIOL TRANSDERMAL SYSTEM [Suspect]
     Active Substance: ESTRADIOL
     Indication: HYSTERECTOMY
     Dosage: UNK
     Route: 062
     Dates: start: 20190616, end: 2019

REACTIONS (4)
  - Phobia [Unknown]
  - Thinking abnormal [Recovered/Resolved]
  - Drug ineffective [Recovered/Resolved]
  - Feeling abnormal [Recovered/Resolved]

NARRATIVE: CASE EVENT DATE: 2019
